FAERS Safety Report 5735042-7 (Version None)
Quarter: 2008Q2

REPORT INFORMATION
  Report Type: 
  Country: None (occurrence: None)
  Receive Date: 20080512
  Receipt Date: 20080430
  Transmission Date: 20081010
  Serious: Yes (Death, Other)
  Sender: FDA-Public Use
  Company Number: FR-ROCHE-561938

PATIENT
  Sex: Female

DRUGS (2)
  1. RIVOTRIL [Suspect]
     Indication: PAIN
     Route: 048
     Dates: start: 20080229, end: 20080328
  2. TOPALGIC LP (TRAMADOL) [Interacting]
     Indication: PAIN
     Route: 048

REACTIONS (14)
  - ABNORMAL BEHAVIOUR [None]
  - BRONCHIAL OBSTRUCTION [None]
  - BUNDLE BRANCH BLOCK LEFT [None]
  - COMA [None]
  - CONVULSION [None]
  - DEHYDRATION [None]
  - DISORIENTATION [None]
  - DRUG INTERACTION [None]
  - FALL [None]
  - HYPERTENSION [None]
  - INTERSTITIAL LUNG DISEASE [None]
  - OEDEMA PERIPHERAL [None]
  - PELVIC FRACTURE [None]
  - TACHYCARDIA [None]
